FAERS Safety Report 8568042-2 (Version None)
Quarter: 2012Q3

REPORT INFORMATION
  Report Type: 
  Country: None (occurrence: None)
  Receive Date: 20120803
  Receipt Date: 20111128
  Transmission Date: 20120928
  Serious: No
  Sender: FDA-Public Use
  Company Number: US-ABBOTT-11P-163-0877793-00

PATIENT
  Sex: Female
  Weight: 68.1 kg

DRUGS (13)
  1. TRICOR [Concomitant]
     Indication: BLOOD CHOLESTEROL INCREASED
  2. LEVOTHYROXINE SODIUM [Concomitant]
     Indication: HYPOTHYROIDISM
  3. NIASPAN [Suspect]
     Indication: BLOOD TRIGLYCERIDES INCREASED
     Dates: start: 20100101
  4. ATENOLOL [Concomitant]
     Indication: HYPERTENSION
  5. ASPIRIN [Concomitant]
     Indication: PROPHYLAXIS
     Dosage: ONE DAILY, WITH NIASPAN
     Dates: start: 20100101
  6. SIMVASTATIN [Concomitant]
     Indication: BLOOD CHOLESTEROL INCREASED
  7. IBUPROFEN [Concomitant]
     Indication: ARTHROPATHY
  8. ASPIRIN [Concomitant]
     Indication: FLUSHING
  9. OMEPRAZOLE [Concomitant]
     Indication: DYSPEPSIA
  10. SINGULAIR [Concomitant]
     Indication: ASTHMA
  11. FISH OIL [Concomitant]
     Indication: MINERAL SUPPLEMENTATION
  12. POTASSIUM [Concomitant]
     Indication: MINERAL SUPPLEMENTATION
  13. CALCIUM [Concomitant]
     Indication: MINERAL SUPPLEMENTATION

REACTIONS (1)
  - FLUSHING [None]
